FAERS Safety Report 17422351 (Version 1)
Quarter: 2020Q1

REPORT INFORMATION
  Report Type: Spontaneous
  Country: US (occurrence: US)
  Receive Date: 20200214
  Receipt Date: 20200214
  Transmission Date: 20200409
  Serious: Yes (Other)
  Sender: FDA-Public Use
  Company Number: US-ELI_LILLY_AND_COMPANY-US202002001796

PATIENT
  Age: 64 Year
  Sex: Female
  Weight: 124 kg

DRUGS (6)
  1. CYMBALTA [Suspect]
     Active Substance: DULOXETINE HYDROCHLORIDE
     Indication: PRODUCT USED FOR UNKNOWN INDICATION
     Dosage: UNK, UNKNOWN
     Route: 065
  2. ZEJULA [Suspect]
     Active Substance: NIRAPARIB
     Dosage: 1 DOSAGE FORM, EACH EVENING (EVERY NIGHT WITH FOOD)
     Route: 048
     Dates: start: 20190613
  3. ZEJULA [Suspect]
     Active Substance: NIRAPARIB
     Dosage: 1 DOSAGE FORM, EACH EVENING (EVERY NIGHT WITH FOOD)
     Route: 048
     Dates: start: 20190613
  4. ZEJULA [Suspect]
     Active Substance: NIRAPARIB
     Dosage: 1 DOSAGE FORM, DAILY
     Route: 048
  5. ZEJULA [Suspect]
     Active Substance: NIRAPARIB
     Indication: OVARIAN CANCER
     Dosage: 3 DOSAGE FORM, DAILY
     Route: 048
     Dates: start: 20190510, end: 20190612
  6. ZEJULA [Suspect]
     Active Substance: NIRAPARIB
     Dosage: 1 DOSAGE FORM, EACH EVENING (EVERY NIGHT WITH FOOD)
     Route: 048
     Dates: start: 20190613

REACTIONS (14)
  - Abnormal dreams [Unknown]
  - Constipation [Unknown]
  - Rapid eye movements sleep abnormal [Unknown]
  - Dehydration [Not Recovered/Not Resolved]
  - Renal impairment [Unknown]
  - Fungal infection [Unknown]
  - Dry mouth [Not Recovered/Not Resolved]
  - Sleep apnoea syndrome [Not Recovered/Not Resolved]
  - Neuropathy peripheral [Unknown]
  - Headache [Not Recovered/Not Resolved]
  - Chills [Unknown]
  - Malaise [Unknown]
  - Blood glucose increased [Unknown]
  - Nausea [Not Recovered/Not Resolved]

NARRATIVE: CASE EVENT DATE: 2019
